FAERS Safety Report 11695514 (Version 3)
Quarter: 2015Q4

REPORT INFORMATION
  Report Type: Report from Study
  Country: UY (occurrence: UY)
  Receive Date: 20151104
  Receipt Date: 20151204
  Transmission Date: 20160304
  Serious: Yes (Other)
  Sender: FDA-Public Use
  Company Number: UY-ROCHE-1620507

PATIENT
  Sex: Female

DRUGS (3)
  1. OXALIPLATIN. [Concomitant]
     Active Substance: OXALIPLATIN
  2. CALCIUM GLUCONATE. [Concomitant]
     Active Substance: CALCIUM GLUCONATE
  3. XELODA [Suspect]
     Active Substance: CAPECITABINE
     Indication: COLON NEOPLASM
     Route: 048
     Dates: start: 20150714

REACTIONS (12)
  - Paraesthesia [Not Recovered/Not Resolved]
  - Conjunctivitis [Recovered/Resolved]
  - Dry skin [Recovering/Resolving]
  - Nasopharyngitis [Unknown]
  - Diarrhoea [Not Recovered/Not Resolved]
  - Weight decreased [Unknown]
  - Lip injury [Recovered/Resolved]
  - Palmar-plantar erythrodysaesthesia syndrome [Recovering/Resolving]
  - Skin exfoliation [Not Recovered/Not Resolved]
  - Temperature intolerance [Recovered/Resolved]
  - Lip swelling [Recovered/Resolved]
  - Hypocalcaemia [Unknown]
